FAERS Safety Report 8383226-4 (Version None)
Quarter: 2012Q2

REPORT INFORMATION
  Report Type: 
  Country: None (occurrence: None)
  Receive Date: 20120522
  Receipt Date: 20120509
  Transmission Date: 20120825
  Serious: Yes (Other)
  Sender: FDA-Public Use
  Company Number: DSU-2012-03862

PATIENT
  Age: 81 Year
  Sex: Female

DRUGS (3)
  1. ASPIRINA PREVENT (ACETYLSALICYLIC ACID) (TABLET) (ACETYLSALICYLIC ACID [Concomitant]
  2. CLINFAR (SIMVASTATIN) (TABLET) (SIMVASTATIN) [Concomitant]
  3. OLMESARTAN MEDOXOMIL [Suspect]
     Indication: HYPERTENSION
     Dosage: 20 MG (20 MG, QD), PER ORAL, 20 MG (10 MG, (1/2) 20 MG TABLET BID), PER ORAL
     Route: 048

REACTIONS (6)
  - NAUSEA [None]
  - HYPOTENSION [None]
  - ASTHENIA [None]
  - LOSS OF CONSCIOUSNESS [None]
  - MALAISE [None]
  - VOMITING [None]
